FAERS Safety Report 5630492-1 (Version None)
Quarter: 2008Q1

REPORT INFORMATION
  Report Type: 
  Country: None (occurrence: None)
  Receive Date: 20080219
  Receipt Date: 20080205
  Transmission Date: 20080703
  Serious: Yes (Death, Other)
  Sender: FDA-Public Use
  Company Number: US-BAYER-200813200GPV

PATIENT

DRUGS (6)
  1. FLUDARABINE [Suspect]
     Indication: BONE MARROW CONDITIONING REGIMEN
     Route: 065
  2. FLUDARABINE [Suspect]
     Route: 065
  3. CYCLOPHOSPHAMIDE [Suspect]
     Indication: BONE MARROW CONDITIONING REGIMEN
     Route: 065
  4. CYCLOPHOSPHAMIDE [Suspect]
     Route: 065
  5. ALEMTUZUMAB [Suspect]
     Indication: BONE MARROW CONDITIONING REGIMEN
     Route: 065
  6. ALEMTUZUMAB [Suspect]
     Route: 065

REACTIONS (7)
  - ALPHA HAEMOLYTIC STREPTOCOCCAL INFECTION [None]
  - BRONCHOPULMONARY ASPERGILLOSIS [None]
  - FUNGAL INFECTION [None]
  - MUCORMYCOSIS [None]
  - PNEUMONIA [None]
  - PULMONARY ALVEOLAR HAEMORRHAGE [None]
  - STENOTROPHOMONAS INFECTION [None]
